FAERS Safety Report 9702571 (Version 1)
Quarter: 2013Q4

REPORT INFORMATION
  Report Type: Spontaneous
  Country: US (occurrence: US)
  Receive Date: 20131121
  Receipt Date: 20131121
  Transmission Date: 20140711
  Serious: No
  Sender: FDA-Public Use
  Company Number: US-SPECTRUM PHARMACEUTICALS, INC.-13-F-US-00070

PATIENT
  Age: 63 Year
  Sex: Male
  Weight: 144 kg

DRUGS (1)
  1. FOLOTYN [Suspect]
     Indication: PERIPHERAL T-CELL LYMPHOMA UNSPECIFIED
     Dosage: 60 MG, QD
     Route: 042
     Dates: start: 20120910, end: 20130102

REACTIONS (1)
  - Disease progression [Not Recovered/Not Resolved]
